FAERS Safety Report 9912484 (Version 1)
Quarter: 2014Q1

REPORT INFORMATION
  Report Type: Spontaneous
  Country: AU (occurrence: AU)
  Receive Date: 20140220
  Receipt Date: 20140220
  Transmission Date: 20141002
  Serious: Yes (Hospitalization)
  Sender: FDA-Public Use
  Company Number: AU-MERCK-1402AUS008378

PATIENT
  Sex: Female

DRUGS (5)
  1. MONTELUKAST SODIUM [Suspect]
     Indication: ASTHMA
     Dosage: 10 MG, UNK
     Route: 048
  2. ATACAND [Concomitant]
  3. IBUPROFEN [Concomitant]
  4. SERETIDE [Concomitant]
  5. TRAMADOL HYDROCHLORIDE [Concomitant]

REACTIONS (2)
  - Therapeutic response unexpected with drug substitution [Unknown]
  - Drug ineffective [Unknown]
